FAERS Safety Report 6972005-8 (Version None)
Quarter: 2010Q3

REPORT INFORMATION
  Report Type: 
  Country: None (occurrence: None)
  Receive Date: 20100908
  Receipt Date: 20100908
  Transmission Date: 20110219
  Serious: Yes (Hospitalization)
  Sender: FDA-Public Use
  Company Number: None

PATIENT
  Age: 65 Year
  Sex: Male
  Weight: 92.5338 kg

DRUGS (2)
  1. AZITHROMYCIN [Suspect]
     Indication: UPPER RESPIRATORY TRACT INFECTION
     Dosage: 6 TABS 2-DAY 1, THEN 1 PER DAY TABLET
     Dates: start: 20100625
  2. AZITHROMYCIN [Suspect]
     Indication: UPPER RESPIRATORY TRACT INFECTION
     Dosage: 6 TABS 2-DAY 1, THEN 1 PER DAY TABLET
     Dates: start: 20100626

REACTIONS (7)
  - BLOOD BLISTER [None]
  - DIARRHOEA [None]
  - GENITAL SWELLING [None]
  - HYPOAESTHESIA [None]
  - JOINT SWELLING [None]
  - OEDEMA PERIPHERAL [None]
  - PAIN IN EXTREMITY [None]
